FAERS Safety Report 5179563-7 (Version None)
Quarter: 2006Q4

REPORT INFORMATION
  Report Type: 
  Country: None (occurrence: None)
  Receive Date: 20061219
  Receipt Date: 20061212
  Transmission Date: 20070319
  Serious: Yes (Hospitalization)
  Sender: FDA-Public Use
  Company Number: TR-BOEHRINGER INGELHEIM PHARMACEUTICALS, INC.-2006-DE-06664GD

PATIENT
  Age: 56 Year
  Sex: Male

DRUGS (2)
  1. MELOXICAM [Suspect]
     Indication: SPONDYLOARTHROPATHY
  2. SALOFALK [Suspect]
     Indication: COLITIS ULCERATIVE

REACTIONS (5)
  - ANOREXIA [None]
  - MALAISE [None]
  - PYREXIA [None]
  - RENAL FAILURE [None]
  - TUBULOINTERSTITIAL NEPHRITIS [None]
